FAERS Safety Report 6408125-6 (Version None)
Quarter: 2009Q4

REPORT INFORMATION
  Report Type: 
  Country: None (occurrence: None)
  Receive Date: 20091016
  Receipt Date: 20091004
  Transmission Date: 20100525
  Serious: Yes (Hospitalization)
  Sender: FDA-Public Use
  Company Number: 1-20299621

PATIENT
  Sex: Female

DRUGS (2)
  1. CLINDAMYCIN [Suspect]
     Indication: TONSILLITIS
     Dosage: 600 MG, 3 TIMES DAILY, INTRAMUSCULAR
     Route: 030
     Dates: start: 20071001
  2. ACENOCOUMAROL [Suspect]
     Indication: CARDIAC FIBRILLATION
     Dosage: UNK,UNK,ORAL
     Route: 048

REACTIONS (11)
  - ACTIVATED PARTIAL THROMBOPLASTIN TIME PROLONGED [None]
  - ANAEMIA [None]
  - BLOOD GLUCOSE INCREASED [None]
  - DRUG INTERACTION [None]
  - INJECTION SITE HAEMATOMA [None]
  - INTERNATIONAL NORMALISED RATIO INCREASED [None]
  - LARYNGEAL HAEMORRHAGE [None]
  - LEUKOCYTOSIS [None]
  - PHARYNGEAL HAEMATOMA [None]
  - PROTHROMBIN TIME PROLONGED [None]
  - TONSILLITIS [None]
